FAERS Safety Report 6034348-4 (Version None)
Quarter: 2009Q1

REPORT INFORMATION
  Report Type: 
  Country: None (occurrence: None)
  Receive Date: 20090112
  Receipt Date: 20090109
  Transmission Date: 20090719
  Serious: Yes (Other)
  Sender: FDA-Public Use
  Company Number: US-PFIZER INC-2008089249

PATIENT
  Sex: Female

DRUGS (1)
  1. NICOTINE [Suspect]
     Route: 055

REACTIONS (2)
  - HIP SURGERY [None]
  - MEDICATION ERROR [None]
